FAERS Safety Report 15600249 (Version 1)
Quarter: 2018Q4

REPORT INFORMATION
  Report Type: Spontaneous
  Country: US (occurrence: US)
  Receive Date: 20181109
  Receipt Date: 20181109
  Transmission Date: 20190205
  Serious: No
  Sender: FDA-Public Use
  Company Number: US-BAUSCH-BL-2018-000392

PATIENT
  Age: 56 Year
  Sex: Female
  Weight: 63.5 kg

DRUGS (7)
  1. VIVITROL [Suspect]
     Active Substance: NALTREXONE
     Dosage: EXTENDED RELEASE
     Route: 030
     Dates: start: 20170915, end: 20170915
  2. BUPROPION HYDROCHLORIDE. [Concomitant]
     Active Substance: BUPROPION HYDROCHLORIDE
     Indication: DEPRESSION
     Dosage: EXTENDED RELEASE(TABLET)
     Route: 048
     Dates: start: 20160810
  3. LIBRIUM [Suspect]
     Active Substance: CHLORDIAZEPOXIDE HYDROCHLORIDE
     Indication: ALCOHOLISM
     Route: 065
     Dates: start: 20170715
  4. BUPROPION HYDROCHLORIDE. [Concomitant]
     Active Substance: BUPROPION HYDROCHLORIDE
     Indication: ANXIETY
  5. VIVITROL [Suspect]
     Active Substance: NALTREXONE
     Indication: ALCOHOLISM
     Dosage: EXTENDED RELEASE
     Route: 030
     Dates: start: 20160822, end: 2016
  6. VITAMIN B [Concomitant]
     Active Substance: VITAMIN B
     Indication: PRODUCT USED FOR UNKNOWN INDICATION
     Dosage: STARTED BEFORE 17/OCT/2016
     Route: 048
  7. VIVITROL [Suspect]
     Active Substance: NALTREXONE
     Dosage: EXTENDED RELEASE
     Route: 030
     Dates: start: 20161118, end: 20170915

REACTIONS (2)
  - Vision blurred [Recovered/Resolved]
  - Fatigue [Recovered/Resolved]

NARRATIVE: CASE EVENT DATE: 20170926
